FAERS Safety Report 10553507 (Version 1)
Quarter: 2014Q4

REPORT INFORMATION
  Report Type: Spontaneous
  Country: US (occurrence: None)
  Receive Date: 20141023
  Receipt Date: 20141023
  Transmission Date: 20150529
  Serious: No
  Sender: FDA-Public Use
  Company Number: AP356-01341-SPO-US

PATIENT
  Age: 52 Year
  Sex: Female
  Weight: 83 kg

DRUGS (3)
  1. BELVIQ [Suspect]
     Active Substance: LORCASERIN HYDROCHLORIDE
     Indication: WEIGHT DECREASED
     Dosage: 10MG, 1 IN 1 D, ORAL
     Route: 048
     Dates: start: 201408, end: 201408
  2. LISINOPRIL. [Concomitant]
     Active Substance: LISINOPRIL
  3. WELLBUTRIN [Concomitant]
     Active Substance: BUPROPION HYDROCHLORIDE

REACTIONS (4)
  - Intentional underdose [None]
  - Breast discomfort [None]
  - Fatigue [None]
  - Hypotension [None]

NARRATIVE: CASE EVENT DATE: 201408
